FAERS Safety Report 21311887 (Version 2)
Quarter: 2024Q3

REPORT INFORMATION
  Report Type: Spontaneous
  Country: US (occurrence: US)
  Receive Date: 20220909
  Receipt Date: 20240906
  Transmission Date: 20241016
  Serious: No
  Sender: DOMPE FARMACEUTICI
  Company Number: US-ARIS GLOBAL-202203-0549

PATIENT
  Sex: Female

DRUGS (33)
  1. OXERVATE [Suspect]
     Active Substance: CENEGERMIN-BKBJ
     Indication: Neurotrophic keratopathy
     Route: 047
     Dates: start: 20220322, end: 20220517
  2. OXERVATE [Suspect]
     Active Substance: CENEGERMIN-BKBJ
     Route: 047
     Dates: start: 20240307
  3. OXERVATE [Suspect]
     Active Substance: CENEGERMIN-BKBJ
  4. OXERVATE [Suspect]
     Active Substance: CENEGERMIN-BKBJ
  5. OXERVATE [Suspect]
     Active Substance: CENEGERMIN-BKBJ
  6. NAPROXEN [Concomitant]
     Active Substance: NAPROXEN
  7. GABAPENTIN [Concomitant]
     Active Substance: GABAPENTIN
  8. NITROGLYCERIN [Concomitant]
     Active Substance: NITROGLYCERIN
  9. CALCIUM [Concomitant]
     Active Substance: CALCIUM
     Dosage: 500 (1250)
  10. GLUCOSAMINE [Concomitant]
     Active Substance: GLUCOSAMINE
  11. MELATONIN [Concomitant]
     Active Substance: MELATONIN
  12. ALLERGY-CONGESTION RELIEF [Concomitant]
  13. VITAMIN B12 [Concomitant]
     Active Substance: CYANOCOBALAMIN
  14. COENZYME Q10 [Concomitant]
     Active Substance: DIETARY SUPPLEMENT\UBIDECARENONE
  15. VITAMIN A [Concomitant]
     Active Substance: VITAMIN A
     Dosage: 10000 UNIT
  16. VITAMIN D3 [Concomitant]
     Active Substance: CHOLECALCIFEROL
  17. MINERALS\VITAMINS [Concomitant]
     Active Substance: MINERALS\VITAMINS
  18. ACYCLOVIR [Concomitant]
     Active Substance: ACYCLOVIR
  19. OMEPRAZOLE [Concomitant]
     Active Substance: OMEPRAZOLE
     Dosage: DELAYED RELEASE
  20. VITAMIN C [Concomitant]
     Active Substance: ASCORBIC ACID
  21. CLONAZEPAM [Concomitant]
     Active Substance: CLONAZEPAM
     Dosage: TABLET RAPIDS
  22. ESCITALOPRAM OXALATE [Concomitant]
     Active Substance: ESCITALOPRAM OXALATE
  23. LOSARTAN POTASSIUM [Concomitant]
     Active Substance: LOSARTAN POTASSIUM
  24. METHOCARBAMOL [Concomitant]
     Active Substance: METHOCARBAMOL
  25. VENTOLIN HFA [Concomitant]
     Active Substance: ALBUTEROL SULFATE
     Dosage: HYDROFLUOROALKANE AEROSOL WITH ADAPTOR
  26. REFRESH CLASSIC [Concomitant]
     Active Substance: POLYVINYL ALCOHOL\POVIDONE
  27. GENTAMICIN SULFATE [Concomitant]
     Active Substance: GENTAMICIN SULFATE
  28. CIPROFLOXACIN HYDROCHLORIDE [Concomitant]
     Active Substance: CIPROFLOXACIN HYDROCHLORIDE
     Dosage: CRYSTALS
  29. PREDNISOLONE-NEPAFENAC [Concomitant]
  30. LUMIGAN [Concomitant]
     Active Substance: BIMATOPROST
  31. ALPHAGAN P [Concomitant]
     Active Substance: BRIMONIDINE TARTRATE
  32. DORZOLAMIDE\TIMOLOL [Concomitant]
     Active Substance: DORZOLAMIDE\TIMOLOL
  33. PILOCARPINE HYDROCHLORIDE [Concomitant]
     Active Substance: PILOCARPINE HYDROCHLORIDE

REACTIONS (8)
  - Periorbital pain [Not Recovered/Not Resolved]
  - Accidental overdose [Unknown]
  - Intentional product misuse [Unknown]
  - Device use issue [Unknown]
  - Eye irritation [Unknown]
  - Product administration error [Unknown]
  - Corneal abrasion [Unknown]
  - Eye pain [Unknown]
